FAERS Safety Report 6029580-X (Version None)
Quarter: 2009Q1

REPORT INFORMATION
  Report Type: 
  Country: None (occurrence: None)
  Receive Date: 20090107
  Receipt Date: 20081230
  Transmission Date: 20090719
  Serious: Yes (Hospitalization)
  Sender: FDA-Public Use
  Company Number: US-AMGEN-QUU326412

PATIENT

DRUGS (2)
  1. ENBREL [Suspect]
     Indication: RHEUMATOID ARTHRITIS
     Route: 064
  2. METHOTREXATE [Concomitant]
     Route: 064

REACTIONS (2)
  - PREMATURE BABY [None]
  - RESPIRATORY DISORDER NEONATAL [None]
